FAERS Safety Report 24938007 (Version 1)
Quarter: 2025Q1

REPORT INFORMATION
  Report Type: Spontaneous
  Country: FR (occurrence: FR)
  Receive Date: 20250206
  Receipt Date: 20250206
  Transmission Date: 20250408
  Serious: Yes (Death)
  Sender: PFIZER
  Company Number: FR-ROCHE-2900358

PATIENT
  Age: 57 Year
  Sex: Male
  Weight: 72 kg

DRUGS (19)
  1. CARBOPLATIN [Suspect]
     Active Substance: CARBOPLATIN
     Indication: Squamous cell carcinoma of lung
     Dosage: 790 MG, EVERY 3 WEEK
     Route: 042
     Dates: start: 20210118
  2. CARBOPLATIN [Suspect]
     Active Substance: CARBOPLATIN
     Dosage: 560 MG, EVERY 3 WEEKS
     Route: 042
     Dates: start: 20210407
  3. ATEZOLIZUMAB [Suspect]
     Active Substance: ATEZOLIZUMAB
     Indication: Squamous cell carcinoma of lung
     Dosage: UNK UNK, EVERY 3 WEEKS
     Route: 042
     Dates: start: 20210118
  4. ATEZOLIZUMAB [Suspect]
     Active Substance: ATEZOLIZUMAB
     Dosage: UNK UNK, EVERY 3 WEEKS
     Route: 042
  5. ATEZOLIZUMAB [Suspect]
     Active Substance: ATEZOLIZUMAB
     Dosage: UNK UNK, EVERY 3 WEEKS
     Route: 042
     Dates: start: 20210407
  6. PACLITAXEL [Concomitant]
     Active Substance: PACLITAXEL
     Indication: Squamous cell carcinoma of lung
     Dosage: 190 MG, WEEKLY (ONCE A WEEK)
     Route: 042
     Dates: start: 20210118
  7. PACLITAXEL [Concomitant]
     Active Substance: PACLITAXEL
     Dosage: UNK, WEEKLY (190 MG (125 MG)
     Route: 042
     Dates: start: 20210413
  8. PRIMPERAN [Concomitant]
     Active Substance: METOCLOPRAMIDE HYDROCHLORIDE
     Indication: Nausea
     Route: 048
     Dates: start: 20210118
  9. MOVICOL [Concomitant]
     Active Substance: POLYETHYLENE GLYCOL 3350\POTASSIUM CHLORIDE\SODIUM BICARBONATE\SODIUM CHLORIDE
     Indication: Constipation
     Dosage: UNK, 1X/DAY (2 U)
     Route: 048
     Dates: start: 20210125
  10. ESOMEPRAZOLE [Concomitant]
     Active Substance: ESOMEPRAZOLE
     Indication: Gastrooesophageal reflux disease
     Dosage: 40 MG, 1X/DAY
     Route: 048
     Dates: start: 20210201
  11. XANAX [Concomitant]
     Active Substance: ALPRAZOLAM
     Indication: Nausea
     Dosage: 0.25 MG, 1X/DAY
     Route: 048
     Dates: start: 20210201
  12. AERIUS (DESLORATADINE) [Concomitant]
     Active Substance: DESLORATADINE
     Dosage: UNK, 1X/DAY
     Route: 048
     Dates: start: 20210201
  13. PHLOROGLUCINOL\1,3,5-TRIMETHOXYBENZENE [Concomitant]
     Active Substance: PHLOROGLUCINOL\1,3,5-TRIMETHOXYBENZENE
     Indication: Abdominal pain
     Dates: start: 20210407
  14. RACECADOTRIL [Concomitant]
     Active Substance: RACECADOTRIL
     Indication: Diarrhoea
     Dates: start: 20210407
  15. METOCLOPRAMIDE [Concomitant]
     Active Substance: METOCLOPRAMIDE
     Indication: Vomiting
     Dates: start: 20210503
  16. MONTMORILLONITE [Concomitant]
     Active Substance: MONTMORILLONITE
     Indication: Diarrhoea
     Dates: start: 20210503
  17. PREDNISONE [Concomitant]
     Active Substance: PREDNISONE
     Dates: start: 20210524, end: 20210603
  18. PREDNISONE [Concomitant]
     Active Substance: PREDNISONE
     Dosage: 60 MG, 1X/DAY
     Route: 048
     Dates: start: 20210513, end: 20210524
  19. HYDROCORTISONE [Concomitant]
     Active Substance: HYDROCORTISONE
     Dates: start: 20210524, end: 20210603

REACTIONS (3)
  - Death [Fatal]
  - Hypophysitis [Not Recovered/Not Resolved]
  - Off label use [Unknown]

NARRATIVE: CASE EVENT DATE: 20210118
